FAERS Safety Report 12370866 (Version 1)
Quarter: 2016Q2

REPORT INFORMATION
  Report Type: Spontaneous
  Country: ES (occurrence: ES)
  Receive Date: 20160516
  Receipt Date: 20160516
  Transmission Date: 20160815
  Serious: Yes (Death, Hospitalization, Other)
  Sender: FDA-Public Use
  Company Number: ES-STRIDES ARCOLAB LIMITED-2016SP003050

PATIENT

DRUGS (2)
  1. MYCOPHENOLATE MOFETIL. [Suspect]
     Active Substance: MYCOPHENOLATE MOFETIL
     Indication: RENAL TRANSPLANT
     Dosage: 1500 MG, QD
  2. CICLOSPORIN [Suspect]
     Active Substance: CYCLOSPORINE
     Indication: RENAL TRANSPLANT
     Dosage: 75 MG, QD

REACTIONS (10)
  - Skin mass [Unknown]
  - Skin tightness [Unknown]
  - Skin discolouration [Unknown]
  - Malignant ascites [Unknown]
  - General physical health deterioration [None]
  - Renal failure [Fatal]
  - Oedema peripheral [Unknown]
  - Skin plaque [Unknown]
  - Skin angiosarcoma [Unknown]
  - Skin lesion [Unknown]
